FAERS Safety Report 15042320 (Version 1)
Quarter: 2018Q2

REPORT INFORMATION
  Report Type: Spontaneous
  Country: BR (occurrence: BR)
  Receive Date: 20180621
  Receipt Date: 20180621
  Transmission Date: 20180711
  Serious: Yes (Hospitalization)
  Sender: FDA-Public Use
  Company Number: BR-AMGEN-BRASP2018040651

PATIENT
  Age: 60 Year
  Sex: Female

DRUGS (1)
  1. ENBREL [Suspect]
     Active Substance: ETANERCEPT
     Indication: PRODUCT USED FOR UNKNOWN INDICATION
     Dosage: 50 MG, UNK
     Route: 065
     Dates: start: 201801

REACTIONS (7)
  - Fall [Unknown]
  - Blood pressure increased [Unknown]
  - Hypersensitivity [Unknown]
  - Injection site pain [Unknown]
  - Bone disorder [Unknown]
  - Gait disturbance [Unknown]
  - Motor dysfunction [Unknown]
